FAERS Safety Report 13357186 (Version 4)
Quarter: 2017Q4

REPORT INFORMATION
  Report Type: Report from Study
  Country: None (occurrence: US)
  Receive Date: 20170322
  Receipt Date: 20171114
  Transmission Date: 20180320
  Serious: Yes (Other)
  Sender: FDA-Public Use
  Company Number: US-ABBVIE-17K-163-1913184-00

PATIENT
  Age: 63 Year
  Sex: Male
  Weight: 112.59 kg

DRUGS (1)
  1. HUMIRA [Suspect]
     Active Substance: ADALIMUMAB
     Indication: COLITIS ULCERATIVE
     Route: 058
     Dates: start: 2015

REACTIONS (11)
  - Laceration [Not Recovered/Not Resolved]
  - Road traffic accident [Not Recovered/Not Resolved]
  - Colitis ulcerative [Not Recovered/Not Resolved]
  - Pain in extremity [Not Recovered/Not Resolved]
  - Joint swelling [Not Recovered/Not Resolved]
  - Pain [Not Recovered/Not Resolved]
  - Oedema peripheral [Not Recovered/Not Resolved]
  - Vascular neoplasm [Not Recovered/Not Resolved]
  - Arthropathy [Not Recovered/Not Resolved]
  - Contusion [Not Recovered/Not Resolved]
  - Colitis ulcerative [Recovered/Resolved]

NARRATIVE: CASE EVENT DATE: 2017
